FAERS Safety Report 10446262 (Version 1)
Quarter: 2014Q3

REPORT INFORMATION
  Report Type: Spontaneous
  Country: US (occurrence: US)
  Receive Date: 20140911
  Receipt Date: 20140911
  Transmission Date: 20150326
  Serious: Yes (Other)
  Sender: FDA-Public Use
  Company Number: US-ACCORD-025795

PATIENT
  Age: 52 Year
  Sex: Male

DRUGS (9)
  1. QUETIAPINE/QUETIAPINE FUMARATE [Concomitant]
  2. ENOXAPARIN [Concomitant]
     Active Substance: ENOXAPARIN
  3. PHENYTOIN. [Concomitant]
     Active Substance: PHENYTOIN
  4. LEVETIRACETAM. [Suspect]
     Active Substance: LEVETIRACETAM
     Indication: PROPHYLAXIS
     Route: 042
  5. PANTOPRAZOLE [Concomitant]
     Active Substance: PANTOPRAZOLE SODIUM
  6. PROPOFOL. [Concomitant]
     Active Substance: PROPOFOL
  7. ACETYLSALICYLIC ACID [Concomitant]
     Active Substance: ASPIRIN
  8. FENTANYL. [Concomitant]
     Active Substance: FENTANYL
  9. CEFAZOLIN [Concomitant]
     Active Substance: CEFAZOLIN

REACTIONS (4)
  - Platelet count decreased [Unknown]
  - Pyrexia [Unknown]
  - Haemoglobin decreased [Unknown]
  - Neutropenia [Recovered/Resolved]
